FAERS Safety Report 23333840 (Version 1)
Quarter: 2023Q4

REPORT INFORMATION
  Report Type: Spontaneous
  Country: US (occurrence: US)
  Receive Date: 20231223
  Receipt Date: 20231223
  Transmission Date: 20240110
  Serious: Yes (Other)
  Sender: FDA-Public Use
  Company Number: US-KVK-TECH, INC-20231200159

PATIENT
  Age: 40 Year
  Sex: Male

DRUGS (2)
  1. METHYLPHENIDATE HYDROCHLORIDE [Suspect]
     Active Substance: METHYLPHENIDATE HYDROCHLORIDE
     Indication: Attention deficit hyperactivity disorder
     Dosage: UNKNOWN DOSE
     Route: 065
  2. METHYLPHENIDATE HYDROCHLORIDE [Suspect]
     Active Substance: METHYLPHENIDATE HYDROCHLORIDE
     Indication: Narcolepsy
     Dosage: UNKNOWN DOSE, STARTED ONCE AGAIN ABOUT 3-MONTHS AGO
     Route: 065
     Dates: start: 202309

REACTIONS (11)
  - Narcolepsy [Unknown]
  - Somnolence [Unknown]
  - Asthenopia [Unknown]
  - Disturbance in attention [Unknown]
  - Muscle spasms [Unknown]
  - Dehydration [Unknown]
  - Cold sweat [Unknown]
  - Disease progression [Unknown]
  - Hyperhidrosis [Unknown]
  - Hot flush [Unknown]
  - Drug ineffective [Unknown]

NARRATIVE: CASE EVENT DATE: 20230101
